FAERS Safety Report 5136062-6 (Version None)
Quarter: 2006Q4

REPORT INFORMATION
  Report Type: 
  Country: None (occurrence: None)
  Receive Date: 20061023
  Receipt Date: 20061009
  Transmission Date: 20070319
  Serious: Yes (Other)
  Sender: FDA-Public Use
  Company Number: 231427

PATIENT
  Age: 64 Year
  Sex: Male
  Weight: 68 kg

DRUGS (3)
  1. AVASTIN [Suspect]
     Indication: DRUG USE FOR UNKNOWN INDICATION
     Dosage: 700 MG, Q3W, INTRAVENOUS
     Route: 042
  2. AREDIA [Concomitant]
  3. ANTIHYPERTENSIVE (ANTIHYPERTENSIVE NOS) [Concomitant]

REACTIONS (5)
  - GINGIVITIS [None]
  - HAEMORRHAGE [None]
  - INFECTION [None]
  - LOOSE TOOTH [None]
  - OSTEONECROSIS [None]
